FAERS Safety Report 7391440-X (Version None)
Quarter: 2011Q1

REPORT INFORMATION
  Report Type: 
  Country: None (occurrence: None)
  Receive Date: 20110324
  Receipt Date: 20110311
  Transmission Date: 20110831
  Serious: Yes (Death)
  Sender: FDA-Public Use
  Company Number: 2011AP000440

PATIENT
  Age: 60 Year
  Sex: Male

DRUGS (3)
  1. HYDROXYCHLOROQUINE (HYDROXYCHLOROQUINE) [Suspect]
     Indication: PRODUCT USED FOR UNKNOWN INDICATION
  2. LEFLUONOMIDE (LEFLUNOMIDE) [Suspect]
     Indication: PRODUCT USED FOR UNKNOWN INDICATION
  3. METHOTREXATE [Suspect]
     Indication: PRODUCT USED FOR UNKNOWN INDICATION

REACTIONS (2)
  - NEUTROPENIC SEPSIS [None]
  - ESCHERICHIA BACTERAEMIA [None]
